FAERS Safety Report 25868576 (Version 1)
Quarter: 2025Q4

REPORT INFORMATION
  Report Type: Report from Study
  Country: US (occurrence: US)
  Receive Date: 20251001
  Receipt Date: 20251001
  Transmission Date: 20260118
  Serious: Yes (Other)
  Sender: EMD SERONO INC
  Company Number: US-Merck Healthcare KGaA-2025048716

PATIENT
  Sex: Male

DRUGS (3)
  1. REBIF [Suspect]
     Active Substance: INTERFERON BETA-1A
     Indication: Multiple sclerosis
     Dates: start: 20120814, end: 20130201
  2. REBIF [Suspect]
     Active Substance: INTERFERON BETA-1A
     Dates: start: 20130621, end: 20250119
  3. REBIF [Suspect]
     Active Substance: INTERFERON BETA-1A
     Dates: start: 20250917

REACTIONS (1)
  - Vocal cord disorder [Unknown]
